FAERS Safety Report 17640271 (Version 3)
Quarter: 2020Q4

REPORT INFORMATION
  Report Type: Other
  Country: US (occurrence: US)
  Receive Date: 20200408
  Receipt Date: 20201022
  Transmission Date: 20210113
  Serious: Yes (Hospitalization, Other)
  Sender: FDA-Public Use
  Company Number: US-ROCHE-2288271

PATIENT
  Age: 67 Year
  Sex: Female
  Weight: 120.31 kg

DRUGS (17)
  1. XOLAIR [Suspect]
     Active Substance: OMALIZUMAB
     Route: 058
  2. HUMALOG [Concomitant]
     Active Substance: INSULIN LISPRO
     Indication: DIABETES MELLITUS
  3. SINGULAIR [Concomitant]
     Active Substance: MONTELUKAST SODIUM
     Route: 048
     Dates: start: 201902
  4. XOLAIR [Suspect]
     Active Substance: OMALIZUMAB
     Route: 058
  5. PREDNISONE. [Concomitant]
     Active Substance: PREDNISONE
  6. LISINOPRIL. [Concomitant]
     Active Substance: LISINOPRIL
     Indication: HYPERTENSION
     Route: 048
  7. ACTOS [Concomitant]
     Active Substance: PIOGLITAZONE HYDROCHLORIDE
     Indication: DIABETES MELLITUS
     Dosage: STARTED 1994 OR 1995
     Route: 048
  8. LANTUS [Concomitant]
     Active Substance: INSULIN GLARGINE
     Indication: DIABETES MELLITUS
     Dosage: TAKE A SHOT EVERY NIGHT
     Route: 058
     Dates: start: 2000
  9. METFORMIN [Concomitant]
     Active Substance: METFORMIN HYDROCHLORIDE
     Indication: DIABETES MELLITUS
  10. XOLAIR [Suspect]
     Active Substance: OMALIZUMAB
     Indication: ASTHMA
     Route: 058
     Dates: start: 20190128
  11. PREDNISONE. [Concomitant]
     Active Substance: PREDNISONE
     Dosage: ONGOING; UNKNOWN
     Dates: start: 201901
  12. XOLAIR [Suspect]
     Active Substance: OMALIZUMAB
     Indication: ASTHMA
     Dosage: TWO SHOTS, ONE IN EACH ARM;?09/NOV/2017, 05/DEC/2017, 04/JAN/2018, 13/FEB/2018, 07/MAR/2018, 12/JUL/
     Route: 065
     Dates: start: 2014
  13. XOLAIR [Suspect]
     Active Substance: OMALIZUMAB
     Indication: ASTHMA
     Dosage: TWO SHOTS, ONE IN EACH ARM ;ONGOING: YES
     Route: 065
     Dates: start: 201901
  14. PREDNISONE. [Concomitant]
     Active Substance: PREDNISONE
  15. SINGULAIR [Concomitant]
     Active Substance: MONTELUKAST SODIUM
     Indication: ASTHMA
     Dosage: STARTED AT 25 YEARS OLD
     Route: 048
     Dates: start: 2015
  16. GLUCOPHAGE [Concomitant]
     Active Substance: METFORMIN HYDROCHLORIDE
     Indication: DIABETES MELLITUS
     Dosage: STARTED 1994 OR 1995
  17. LIPITOR [Concomitant]
     Active Substance: ATORVASTATIN CALCIUM
     Indication: BLOOD CHOLESTEROL INCREASED
     Route: 048

REACTIONS (4)
  - Chronic obstructive pulmonary disease [Not Recovered/Not Resolved]
  - Influenza [Recovered/Resolved]
  - Asthma [Recovered/Resolved]
  - Memory impairment [Unknown]

NARRATIVE: CASE EVENT DATE: 201901
